FAERS Safety Report 5634440-X (Version None)
Quarter: 2008Q1

REPORT INFORMATION
  Report Type: 
  Country: None (occurrence: None)
  Receive Date: 20080222
  Receipt Date: 20080211
  Transmission Date: 20080703
  Serious: Yes (Other)
  Sender: FDA-Public Use
  Company Number: US-ASTRAZENECA-2006UW08156

PATIENT
  Age: 17334 Day
  Sex: Female
  Weight: 90.9 kg

DRUGS (9)
  1. SEROQUEL [Suspect]
     Indication: SCHIZOPHRENIA
     Route: 048
     Dates: start: 20020102, end: 20051207
  2. SEROQUEL [Suspect]
     Indication: MENTAL DISORDER
     Route: 048
     Dates: start: 20020102, end: 20051207
  3. ABILIFY [Concomitant]
     Dates: start: 20030101, end: 20060101
  4. GEODON [Concomitant]
     Dates: start: 20060101
  5. HALDOL [Concomitant]
     Dates: start: 19930101, end: 19990101
  6. ZYPREXA [Concomitant]
     Dates: start: 19990101, end: 20010101
  7. WELLBUTRIN XL [Concomitant]
     Dates: start: 20031208
  8. TEMAZEPAM [Concomitant]
     Dates: start: 20000711
  9. AMITRIPTYLINE HCL [Concomitant]
     Dates: start: 20000711

REACTIONS (3)
  - DIABETIC RETINOPATHY [None]
  - LIVER FUNCTION TEST ABNORMAL [None]
  - TYPE 2 DIABETES MELLITUS [None]
